FAERS Safety Report 8524434-9 (Version None)
Quarter: 2012Q3

REPORT INFORMATION
  Report Type: 
  Country: None (occurrence: None)
  Receive Date: 20120720
  Receipt Date: 20111205
  Transmission Date: 20120928
  Serious: No
  Sender: FDA-Public Use
  Company Number: US-MYLANLABS-2011S1022627

PATIENT
  Age: 38 Year
  Sex: Female

DRUGS (2)
  1. CIPROFLOXACIN [Suspect]
     Route: 048
     Dates: start: 20111028, end: 20111029
  2. METRONIDAZOLE [Suspect]
     Route: 048
     Dates: start: 20111028, end: 20111029

REACTIONS (3)
  - PYREXIA [None]
  - PAIN [None]
  - CHILLS [None]
